FAERS Safety Report 7687124-0 (Version None)
Quarter: 2011Q3

REPORT INFORMATION
  Report Type: 
  Country: None (occurrence: None)
  Receive Date: 20110816
  Receipt Date: 20110805
  Transmission Date: 20111222
  Serious: Yes (Other)
  Sender: FDA-Public Use
  Company Number: PHFR2011GB04653

PATIENT
  Sex: Female

DRUGS (1)
  1. ZOLEDRONOC ACID [Suspect]
     Dosage: UNK
     Route: 042

REACTIONS (6)
  - GENERAL PHYSICAL CONDITION ABNORMAL [None]
  - BLOOD PRESSURE INCREASED [None]
  - MALAISE [None]
  - PAIN [None]
  - HEART RATE INCREASED [None]
  - BONE PAIN [None]
